FAERS Safety Report 24833614 (Version 1)
Quarter: 2025Q1

REPORT INFORMATION
  Report Type: Spontaneous
  Country: US (occurrence: US)
  Receive Date: 20250112
  Receipt Date: 20250112
  Transmission Date: 20250409
  Serious: No
  Sender: SANOFI AVENTIS
  Company Number: US-SA-2025SA009726

PATIENT
  Age: 73 Year
  Sex: Female
  Weight: 100.69 kg

DRUGS (1)
  1. DUPIXENT [Suspect]
     Active Substance: DUPILUMAB
     Indication: Dermatitis atopic
     Dosage: 300 MG UNDER THE SKINEVERY OTHER WEEK
     Route: 058
     Dates: start: 20241224

REACTIONS (1)
  - Nasopharyngitis [Unknown]
